FAERS Safety Report 4833108-7 (Version None)
Quarter: 2005Q4

REPORT INFORMATION
  Report Type: 
  Country: None (occurrence: None)
  Receive Date: 20051121
  Receipt Date: 20051028
  Transmission Date: 20060501
  Serious: Yes (Other)
  Sender: FDA-Public Use
  Company Number: JP-ROCHE-423133

PATIENT
  Age: 1 Year
  Sex: Male

DRUGS (3)
  1. ROCEPHIN [Suspect]
     Indication: BACTERIAL INFECTION
     Route: 041
     Dates: start: 20051002, end: 20051010
  2. ROCEPHIN [Suspect]
     Route: 041
     Dates: start: 20051011, end: 20051011
  3. ROCEPHIN [Suspect]
     Route: 041
     Dates: start: 20051012, end: 20051012

REACTIONS (1)
  - HYPOTENSION [None]
